FAERS Safety Report 5145718-0 (Version None)
Quarter: 2006Q4

REPORT INFORMATION
  Report Type: 
  Country: None (occurrence: None)
  Receive Date: 20060915
  Receipt Date: 20051014
  Transmission Date: 20070319
  Serious: Yes (Hospitalization)
  Sender: FDA-Public Use
  Company Number: S05-USA-04715-01

PATIENT
  Age: 43 Year
  Sex: Male

DRUGS (9)
  1. CELEXA [Suspect]
     Indication: DEPRESSION
     Dosage: 60 MG QD PO
     Route: 048
     Dates: start: 20050701, end: 20050808
  2. CELEXA [Suspect]
     Indication: DEPRESSION
     Dosage: 20 MG QD PO
     Route: 048
     Dates: start: 20050809, end: 20050823
  3. CELEXA [Suspect]
     Indication: DEPRESSION
     Dosage: 20 MG QD PO
     Route: 048
     Dates: start: 20050830, end: 20050831
  4. CELEXA [Suspect]
     Indication: DEPRESSION
     Dosage: 20 MG QD PO
     Route: 048
     Dates: start: 20050918
  5. CELEXA [Suspect]
     Indication: DEPRESSION
     Dosage: 20 MG QD PO
     Route: 048
     Dates: start: 20010101, end: 20050701
  6. CELEXA [Suspect]
     Indication: DEPRESSION
     Dosage: 10 MG QD PO
     Route: 048
     Dates: start: 20050901, end: 20050917
  7. WELLBUTRIN [Suspect]
     Indication: DEPRESSION
     Dosage: 150 MG QD PO
     Route: 048
     Dates: start: 20050701, end: 20050801
  8. ABILIFY [Concomitant]
  9. KLONOPIN [Concomitant]

REACTIONS (5)
  - AGITATION [None]
  - ARTHRALGIA [None]
  - DEPRESSION [None]
  - OEDEMA PERIPHERAL [None]
  - PARAESTHESIA [None]
